FAERS Safety Report 7301505-6 (Version None)
Quarter: 2011Q1

REPORT INFORMATION
  Report Type: 
  Country: None (occurrence: None)
  Receive Date: 20110218
  Receipt Date: 20100920
  Transmission Date: 20110831
  Serious: No
  Sender: FDA-Public Use
  Company Number: US-BRISTOL-MYERS SQUIBB COMPANY-15296304

PATIENT
  Age: 45 Year
  Sex: Female

DRUGS (2)
  1. KENALOG [Suspect]
     Indication: RHINITIS ALLERGIC
     Route: 030
     Dates: start: 20090925
  2. ZYRTEC [Concomitant]
     Dates: start: 20090925

REACTIONS (4)
  - INJECTION SITE ATROPHY [None]
  - URINARY TRACT INFECTION [None]
  - OROPHARYNGEAL PAIN [None]
  - CONTUSION [None]
